FAERS Safety Report 5798377-8 (Version None)
Quarter: 2008Q3

REPORT INFORMATION
  Report Type: 
  Country: None (occurrence: None)
  Receive Date: 20080702
  Receipt Date: 20080425
  Transmission Date: 20090109
  Serious: No
  Sender: FDA-Public Use
  Company Number: A0717359A

PATIENT
  Age: 53 Year
  Sex: Female
  Weight: 77.3 kg

DRUGS (3)
  1. PARNATE [Suspect]
     Indication: DEPRESSION
     Dosage: 10MG THREE TIMES PER DAY
     Route: 048
     Dates: start: 20010101
  2. CLONAZEPAM [Concomitant]
     Dosage: 2MG THREE TIMES PER DAY
  3. AMBIEN [Concomitant]
     Dosage: 10MG AT NIGHT

REACTIONS (1)
  - DIARRHOEA [None]
